FAERS Safety Report 9721788 (Version 3)
Quarter: 2014Q2

REPORT INFORMATION
  Report Type: Spontaneous
  Country: US (occurrence: US)
  Receive Date: 20131201
  Receipt Date: 20140428
  Transmission Date: 20141212
  Serious: No
  Sender: FDA-Public Use
  Company Number: US-ABBVIE-13P-163-1156931-00

PATIENT
  Sex: Male
  Weight: 113.5 kg

DRUGS (7)
  1. ANDROGEL [Suspect]
     Indication: BLOOD TESTOSTERONE DECREASED
     Route: 061
     Dates: start: 20130921, end: 20130930
  2. ANDROGEL [Suspect]
     Dosage: APPROXIMATELY 6-8 MONTHS
     Route: 061
     Dates: start: 2013, end: 201312
  3. ANDROGEL [Suspect]
     Route: 061
     Dates: start: 201312
  4. EXFORGE [Concomitant]
     Indication: HYPERTENSION
  5. LOVAZA [Concomitant]
     Indication: BLOOD CHOLESTEROL INCREASED
  6. LIVALO [Concomitant]
     Indication: BLOOD CHOLESTEROL INCREASED
  7. LORATADINE [Concomitant]
     Indication: SEASONAL ALLERGY

REACTIONS (3)
  - Incorrect dose administered [Unknown]
  - Drug ineffective [Not Recovered/Not Resolved]
  - Asthenia [Not Recovered/Not Resolved]
